FAERS Safety Report 5525381-7 (Version None)
Quarter: 2007Q4

REPORT INFORMATION
  Report Type: 
  Country: None (occurrence: None)
  Receive Date: 20071126
  Receipt Date: 20071123
  Transmission Date: 20080405
  Serious: Yes (Other)
  Sender: FDA-Public Use
  Company Number: GB-JNJFOC-20071004863

PATIENT
  Age: 52 Year
  Sex: Female
  Weight: 54 kg

DRUGS (9)
  1. DOXORUBICIN HCL [Suspect]
     Indication: LYMPHOMA
     Route: 042
  2. CYCLOPHOSPHAMIDE [Suspect]
     Indication: LYMPHOMA
     Route: 042
  3. CYCLIZINE [Suspect]
     Indication: NAUSEA
     Route: 042
  4. FLUDARABINE PHOSPHATE [Suspect]
     Indication: CHRONIC LYMPHOCYTIC LEUKAEMIA
     Route: 065
  5. GRANISETRON [Interacting]
     Indication: LYMPHOMA
     Route: 042
  6. PREDNISONE TAB [Suspect]
     Indication: LYMPHOMA
     Route: 042
  7. VINCRISTINE SULFATE [Interacting]
     Indication: LYMPHOMA
     Route: 042
  8. TEGRETOL [Interacting]
     Indication: EPILEPSY
     Route: 048
  9. ZOFRAN [Suspect]
     Indication: NAUSEA
     Route: 048

REACTIONS (2)
  - DRUG INTERACTION [None]
  - NAUSEA [None]
